FAERS Safety Report 11257271 (Version 1)
Quarter: 2015Q3

REPORT INFORMATION
  Report Type: Other
  Country: GB (occurrence: GB)
  Receive Date: 20150709
  Receipt Date: 20150709
  Transmission Date: 20151125
  Serious: Yes (Life-Threatening, Hospitalization)
  Sender: FDA-Public Use
  Company Number: GB-MYLANLABS-2015M1021900

PATIENT

DRUGS (6)
  1. PARACETAMOL [Concomitant]
     Active Substance: ACETAMINOPHEN
     Dosage: UNK
  2. OXALIPLATIN. [Concomitant]
     Active Substance: OXALIPLATIN
     Indication: COLON CANCER STAGE I
     Dosage: UNK
     Dates: start: 20150613, end: 20150613
  3. CAPECITABINE. [Suspect]
     Active Substance: CAPECITABINE
     Indication: COLON CANCER STAGE I
     Dosage: 1800 MG, BID
     Route: 048
     Dates: start: 20150611, end: 20150613
  4. DOMPERIDONE [Concomitant]
     Active Substance: DOMPERIDONE
     Dosage: UNK
     Dates: start: 20150612
  5. LOPERAMIDE [Concomitant]
     Active Substance: LOPERAMIDE
     Dosage: UNK
  6. LANSOPRAZOLE. [Concomitant]
     Active Substance: LANSOPRAZOLE
     Dosage: UNK

REACTIONS (7)
  - Arteriospasm coronary [Recovered/Resolved with Sequelae]
  - Fatigue [Recovered/Resolved with Sequelae]
  - Chest pain [Recovered/Resolved with Sequelae]
  - Acute myocardial infarction [Recovered/Resolved with Sequelae]
  - Paraesthesia [Recovered/Resolved with Sequelae]
  - Headache [Recovered/Resolved with Sequelae]
  - Temperature intolerance [Recovered/Resolved with Sequelae]

NARRATIVE: CASE EVENT DATE: 20150613
